FAERS Safety Report 7237293-1 (Version None)
Quarter: 2011Q1

REPORT INFORMATION
  Report Type: 
  Country: None (occurrence: None)
  Receive Date: 20110121
  Receipt Date: 20110111
  Transmission Date: 20110831
  Serious: Yes (Hospitalization, Other)
  Sender: FDA-Public Use
  Company Number: CA-JNJFOC-20110103202

PATIENT
  Sex: Female
  Weight: 64 kg

DRUGS (7)
  1. ALENDRONATE [Concomitant]
  2. REMICADE [Suspect]
     Indication: CROHN'S DISEASE
     Route: 042
  3. REMICADE [Suspect]
     Route: 042
  4. POTASSIUM CHLORIDE [Concomitant]
     Route: 048
  5. LIPITOR [Concomitant]
     Route: 048
  6. HCT [Concomitant]
     Route: 048
  7. VITAMIN B-12 [Concomitant]
     Route: 030

REACTIONS (1)
  - CHEST PAIN [None]
